FAERS Safety Report 7370320-X (Version None)
Quarter: 2011Q1

REPORT INFORMATION
  Report Type: 
  Country: None (occurrence: None)
  Receive Date: 20110323
  Receipt Date: 20110317
  Transmission Date: 20110831
  Serious: Yes (Other)
  Sender: FDA-Public Use
  Company Number: US-PFIZER INC-2011060127

PATIENT
  Sex: Male

DRUGS (1)
  1. EFFEXOR [Suspect]
     Dosage: 37.5 MG, 2X/DAY
     Dates: start: 20110218

REACTIONS (2)
  - GASTRIC DISORDER [None]
  - NEOPLASM MALIGNANT [None]
